FAERS Safety Report 7537445-7 (Version None)
Quarter: 2011Q2

REPORT INFORMATION
  Report Type: 
  Country: None (occurrence: None)
  Receive Date: 20110603
  Receipt Date: 20110518
  Transmission Date: 20111010
  Serious: Yes (Death, Hospitalization)
  Sender: FDA-Public Use
  Company Number: 2011MA006128

PATIENT
  Age: 17 Year
  Sex: Female
  Weight: 55 kg

DRUGS (4)
  1. ROCURONIUM BROMIDE [Concomitant]
  2. PROPOFOL [Concomitant]
  3. FEVERALL [Suspect]
     Indication: ANALGESIC THERAPY
     Dosage: 90;RTL
     Route: 054
  4. FENTANYL-100 [Concomitant]

REACTIONS (3)
  - ACUTE HEPATIC FAILURE [None]
  - MULTI-ORGAN FAILURE [None]
  - SHOCK [None]
